FAERS Safety Report 23735451 (Version 1)
Quarter: 2024Q2

REPORT INFORMATION
  Report Type: Spontaneous
  Country: FR (occurrence: FR)
  Receive Date: 20240412
  Receipt Date: 20240412
  Transmission Date: 20240716
  Serious: Yes (Other)
  Sender: FDA-Public Use
  Company Number: FR-BRISTOL-MYERS SQUIBB COMPANY-2024-039444

PATIENT
  Age: 76 Year
  Sex: Male
  Weight: 49 kg

DRUGS (2)
  1. OPDIVO [Suspect]
     Active Substance: NIVOLUMAB
     Indication: Pleural mesothelioma malignant
     Dosage: 09-JUN-2023 (STOP DATE) / UNK (11 DOSES RECEIVED BEFORE INTERRUPTION)
     Route: 042
     Dates: start: 20221221, end: 20230511
  2. YERVOY [Suspect]
     Active Substance: IPILIMUMAB
     Indication: Pleural mesothelioma malignant
     Dosage: 09-JUN-2023 (STOP DATE) / UNK (4 DOSES RECEIVED BEFORE INTERRUPTION)
     Route: 042
     Dates: start: 20221221, end: 20230511

REACTIONS (7)
  - General physical health deterioration [Not Recovered/Not Resolved]
  - Malignant neoplasm progression [Unknown]
  - Off label use [Unknown]
  - Dehydration [Not Recovered/Not Resolved]
  - Pneumonia [Not Recovered/Not Resolved]
  - Prerenal failure [Not Recovered/Not Resolved]
  - Cachexia [Not Recovered/Not Resolved]

NARRATIVE: CASE EVENT DATE: 20230602
